FAERS Safety Report 17466485 (Version 1)
Quarter: 2020Q1

REPORT INFORMATION
  Report Type: Spontaneous
  Country: DK (occurrence: DK)
  Receive Date: 20200227
  Receipt Date: 20200227
  Transmission Date: 20200409
  Serious: Yes (Hospitalization)
  Sender: FDA-Public Use
  Company Number: DK-ACCORD-173869

PATIENT
  Age: 74 Year
  Sex: Female

DRUGS (2)
  1. XGEVA [Suspect]
     Active Substance: DENOSUMAB
     Indication: PLASMA CELL MYELOMA
     Dosage: DOSAGE: 1 INFUSION EVERY 3 TO 4 WEEKS, STRENGTH:120 MG
     Route: 042
     Dates: start: 2018, end: 2019
  2. ZOLEDRONIC ACID ACCORD [Suspect]
     Active Substance: ZOLEDRONIC ACID
     Indication: PLASMA CELL MYELOMA
     Dosage: DOSAGE: 1 INFUSION EVERY 3 TO 4 WEEKS, STRENGTH:4 MG/5 ML
     Route: 042
     Dates: start: 2015, end: 2018

REACTIONS (4)
  - Oroantral fistula [Unknown]
  - Off label use [Unknown]
  - Jaw operation [Unknown]
  - Osteonecrosis of jaw [Recovering/Resolving]

NARRATIVE: CASE EVENT DATE: 20191007
